FAERS Safety Report 24209435 (Version 1)
Quarter: 2024Q3

REPORT INFORMATION
  Report Type: Spontaneous
  Country: US (occurrence: None)
  Receive Date: 20240813
  Receipt Date: 20240813
  Transmission Date: 20241016
  Serious: Yes (Other)
  Sender: Public
  Company Number: None

PATIENT
  Age: 60 Year
  Sex: Female

DRUGS (1)
  1. LENALIDOMIDE [Suspect]
     Active Substance: LENALIDOMIDE
     Indication: Plasma cell myeloma
     Dosage: FREQUENCY : DAILY;?
     Route: 048
     Dates: start: 20240624

REACTIONS (7)
  - Urinary tract infection [None]
  - Asthenia [None]
  - Fatigue [None]
  - Pain [None]
  - Myalgia [None]
  - Oropharyngeal pain [None]
  - Viral upper respiratory tract infection [None]

NARRATIVE: CASE EVENT DATE: 20240813
